FAERS Safety Report 5080964-6 (Version None)
Quarter: 2006Q3

REPORT INFORMATION
  Report Type: 
  Country: None (occurrence: None)
  Receive Date: 20060810
  Receipt Date: 20060726
  Transmission Date: 20061208
  Serious: Yes (Hospitalization)
  Sender: FDA-Public Use
  Company Number: S06-SWE-03123-01

PATIENT
  Age: 86 Year
  Sex: Male

DRUGS (5)
  1. CITALOPRAM HYDROBROMIDE [Suspect]
     Indication: DEPRESSION
     Dosage: 20 MG QD PO
     Route: 048
  2. WARFARIN SODIUM [Suspect]
     Indication: ATRIAL FIBRILLATION
     Dosage: 2.5 MG, DAILY PO
     Route: 048
  3. FUROSEMIDE [Concomitant]
  4. XALATAN [Concomitant]
  5. AZOPT [Concomitant]

REACTIONS (6)
  - DEPRESSED LEVEL OF CONSCIOUSNESS [None]
  - HYPOTENSION [None]
  - LABORATORY TEST ABNORMAL [None]
  - MELAENA [None]
  - RECTAL HAEMORRHAGE [None]
  - SYNCOPE [None]
